FAERS Safety Report 4560011-2 (Version None)
Quarter: 2005Q1

REPORT INFORMATION
  Report Type: 
  Country: None (occurrence: None)
  Receive Date: 20050124
  Receipt Date: 20050117
  Transmission Date: 20050727
  Serious: Yes (Other)
  Sender: FDA-Public Use
  Company Number: 04-12-1735

PATIENT
  Age: 56 Year
  Sex: Female

DRUGS (2)
  1. CLOZAPINE [Suspect]
     Indication: SCHIZOPHRENIA
     Dosage: 250-450 MG QD ORAL
     Route: 048
     Dates: start: 20021101, end: 20041201
  2. CHEMOTHERAPY [Suspect]
     Indication: NEOPLASM MALIGNANT

REACTIONS (3)
  - AGRANULOCYTOSIS [None]
  - BREAST CANCER [None]
  - NEUTROPENIA [None]
